FAERS Safety Report 16682369 (Version 2)
Quarter: 2019Q3

REPORT INFORMATION
  Report Type: Spontaneous
  Country: US (occurrence: US)
  Receive Date: 20190808
  Receipt Date: 20190826
  Transmission Date: 20191004
  Serious: Yes (Other)
  Sender: FDA-Public Use
  Company Number: US-PFIZER INC-2019335906

PATIENT
  Age: 26 Year
  Sex: Male

DRUGS (8)
  1. ESCITALOPRAM [Interacting]
     Active Substance: ESCITALOPRAM OXALATE
     Dosage: 10 MG, UNK (REDUCTION OF ESCITALOPRAM TO 10 MG)
  2. ONDANSETRON [Interacting]
     Active Substance: ONDANSETRON
     Dosage: UNK (HE REDUCED HIS ONDANSETRON TO 3 TIMES A DAY)
  3. ESCITALOPRAM [Interacting]
     Active Substance: ESCITALOPRAM OXALATE
     Dosage: 15 MG, UNK (ESCITALOPRAM WAS TITRATED GRADUALLY TO 15 MG WITHIN 4 MONTHS)
  4. ONDANSETRON [Suspect]
     Active Substance: ONDANSETRON
     Indication: NAUSEA
     Dosage: 40 MG, UNK (HE WAS USING ONDANSETRON UP TO 5 TIMES A DAY)
  5. ESCITALOPRAM [Interacting]
     Active Substance: ESCITALOPRAM OXALATE
     Dosage: 15 MG, UNK (THREE MONTHS LATER, HIS ESCITALOPRAM WAS INCREASED AGAIN TO 15 MG)
  6. STRIBILD [Interacting]
     Active Substance: COBICISTAT\ELVITEGRAVIR\EMTRICITABINE\TENOFOVIR DISOPROXIL FUMARATE
     Indication: HIV INFECTION
     Dosage: UNK
  7. ALPRAZOLAM. [Concomitant]
     Active Substance: ALPRAZOLAM
     Indication: GENERALISED ANXIETY DISORDER
     Dosage: 0.5 MG, 4X/DAY
  8. ESCITALOPRAM [Interacting]
     Active Substance: ESCITALOPRAM OXALATE
     Indication: GENERALISED ANXIETY DISORDER
     Dosage: 5 MG, UNK

REACTIONS (3)
  - Drug interaction [Unknown]
  - Myoclonus [Recovered/Resolved]
  - Serotonin syndrome [Recovered/Resolved]
